FAERS Safety Report 6615480-0 (Version None)
Quarter: 2010Q1

REPORT INFORMATION
  Report Type: 
  Country: None (occurrence: None)
  Receive Date: 20100305
  Receipt Date: 20100224
  Transmission Date: 20100710
  Serious: Yes (Hospitalization)
  Sender: FDA-Public Use
  Company Number: DE-JNJFOC-20100210443

PATIENT
  Sex: Male

DRUGS (1)
  1. TAVANIC [Suspect]
     Indication: RESPIRATORY TRACT INFECTION
     Route: 065

REACTIONS (2)
  - CHORDAE TENDINAE RUPTURE [None]
  - PULMONARY OEDEMA [None]
